FAERS Safety Report 23977687 (Version 1)
Quarter: 2024Q2

REPORT INFORMATION
  Report Type: Spontaneous
  Country: BR (occurrence: BR)
  Receive Date: 20240614
  Receipt Date: 20240614
  Transmission Date: 20240716
  Serious: Yes (Other)
  Sender: FDA-Public Use
  Company Number: BR-JNJFOC-20240619666

PATIENT
  Age: 70 Year
  Sex: Female

DRUGS (1)
  1. STELARA [Suspect]
     Active Substance: USTEKINUMAB
     Indication: Product used for unknown indication
     Route: 058

REACTIONS (1)
  - Polyneuropathy [Not Recovered/Not Resolved]

NARRATIVE: CASE EVENT DATE: 20230101
